FAERS Safety Report 8887477 (Version 1)
Quarter: 2012Q4

REPORT INFORMATION
  Report Type: Spontaneous
  Country: US (occurrence: None)
  Receive Date: 20121101
  Receipt Date: 20121101
  Transmission Date: 20130627
  Serious: No
  Sender: FDA-Public Use
  Company Number: None

PATIENT

DRUGS (1)
  1. LISINOPRIL/HCTZ [Suspect]

REACTIONS (5)
  - Capillary fragility [None]
  - Ocular vascular disorder [None]
  - Pain in extremity [None]
  - Chest pain [None]
  - Red blood cell sedimentation rate increased [None]
